FAERS Safety Report 9633582 (Version 1)
Quarter: 2013Q4

REPORT INFORMATION
  Report Type: Spontaneous
  Country: US (occurrence: US)
  Receive Date: 20131021
  Receipt Date: 20131021
  Transmission Date: 20140711
  Serious: No
  Sender: FDA-Public Use
  Company Number: US-BAUSCH-BL-2012-001467

PATIENT
  Sex: Male

DRUGS (1)
  1. BEPREVE (BEPOTASTINE BESILATE OPHTHALMIC SOLUTION 1.5%) [Suspect]
     Indication: EYE PRURITUS
     Dosage: 1 DROP; TWICE A DAY; OPHTHALMIC
     Route: 047
     Dates: start: 201210

REACTIONS (2)
  - Eye irritation [Recovered/Resolved]
  - Eye pruritus [Unknown]
